FAERS Safety Report 20772524 (Version 1)
Quarter: 2022Q2

REPORT INFORMATION
  Report Type: Spontaneous
  Country: US (occurrence: US)
  Receive Date: 20220502
  Receipt Date: 20220502
  Transmission Date: 20220720
  Serious: No
  Sender: FDA-Public Use
  Company Number: US-ELI_LILLY_AND_COMPANY-US202204013441

PATIENT
  Age: 65 Year
  Sex: Male

DRUGS (1)
  1. TRULICITY [Suspect]
     Active Substance: DULAGLUTIDE
     Indication: Blood glucose increased
     Dosage: 0.75 MG, WEEKLY (1/W)
     Route: 065
     Dates: start: 20220414

REACTIONS (3)
  - Decreased appetite [Recovered/Resolved with Sequelae]
  - Diarrhoea [Recovered/Resolved]
  - Product dose omission issue [Unknown]

NARRATIVE: CASE EVENT DATE: 20220415
